FAERS Safety Report 7670100-1 (Version None)
Quarter: 2011Q3

REPORT INFORMATION
  Report Type: 
  Country: None (occurrence: None)
  Receive Date: 20110808
  Receipt Date: 20110728
  Transmission Date: 20111222
  Serious: Yes (Hospitalization)
  Sender: FDA-Public Use
  Company Number: US-ASTRAZENECA-2011SE45114

PATIENT
  Age: 60 Year
  Sex: Female
  Weight: 61.2 kg

DRUGS (4)
  1. OXYCODONE HCL [Suspect]
     Route: 065
  2. THYROID MEDICATION [Concomitant]
  3. SEROQUEL [Suspect]
     Route: 048
  4. LEXAPRO [Concomitant]

REACTIONS (4)
  - OVERDOSE [None]
  - PANIC DISORDER [None]
  - HALLUCINATION [None]
  - LOGORRHOEA [None]
